FAERS Safety Report 7933381-2 (Version None)
Quarter: 2011Q4

REPORT INFORMATION
  Report Type: 
  Country: None (occurrence: None)
  Receive Date: 20111122
  Receipt Date: 20111122
  Transmission Date: 20120403
  Serious: No
  Sender: FDA-Public Use
  Company Number: None

PATIENT
  Age: 62 Year
  Sex: Male
  Weight: 94 kg

DRUGS (2)
  1. VANCOMYCIN [Suspect]
     Indication: LOCALISED INFECTION
     Dosage: 1.9 G, 1.5 G X 9 DOSES
     Route: 042
     Dates: start: 20110103, end: 20110118
  2. ZOSYN [Concomitant]

REACTIONS (1)
  - NEPHROPATHY TOXIC [None]
